FAERS Safety Report 23995128 (Version 1)
Quarter: 2024Q2

REPORT INFORMATION
  Report Type: Spontaneous
  Country: US (occurrence: None)
  Receive Date: 20240619
  Receipt Date: 20240619
  Transmission Date: 20240716
  Serious: Yes (Death)
  Sender: FDA-Public Use
  Company Number: None

PATIENT
  Age: 17 Year
  Sex: Male

DRUGS (22)
  1. PULMOZYME [Suspect]
     Active Substance: DORNASE ALFA
     Dosage: FREQUENCY : TWICE A DAY;?
     Route: 055
  2. carvedilol 1mg/ml solution [Concomitant]
  3. enalapril 1mg/ml [Concomitant]
  4. furosemide 10mg/ml [Concomitant]
  5. LORAZEPAM [Concomitant]
     Active Substance: LORAZEPAM
  6. Melatonin 1mg/ml [Concomitant]
  7. Sodium Chloride 1g [Concomitant]
  8. Acetylcysteine 20% [Concomitant]
  9. BENZOYL PEROXIDE [Concomitant]
     Active Substance: BENZOYL PEROXIDE
  10. Albuterol 2.5mg/3ml [Concomitant]
  11. Amantadine 50mg/5ml [Concomitant]
  12. amikacin 250mg/ml [Concomitant]
  13. ASPIRIN [Concomitant]
     Active Substance: ASPIRIN
  14. baclofen 5mg/ml [Concomitant]
  15. bisacodyl 10mg [Concomitant]
  16. CLONIDINE [Concomitant]
     Active Substance: CLONIDINE
  17. diazepam 5mg/5ml [Concomitant]
  18. Docusate 50mg/5ml [Concomitant]
  19. ESOMEPRAZOLE [Concomitant]
     Active Substance: ESOMEPRAZOLE
  20. fluticasone 110mcg [Concomitant]
  21. LEVETIRACETAM [Concomitant]
     Active Substance: LEVETIRACETAM
  22. MONTELUKAST [Concomitant]
     Active Substance: MONTELUKAST SODIUM

REACTIONS (5)
  - Respiratory distress [None]
  - Cardiac arrest [None]
  - Tracheitis [None]
  - Pneumonia [None]
  - Atrioventricular block second degree [None]

NARRATIVE: CASE EVENT DATE: 20240602
